FAERS Safety Report 5528537-2 (Version None)
Quarter: 2007Q4

REPORT INFORMATION
  Report Type: 
  Country: None (occurrence: None)
  Receive Date: 20071128
  Receipt Date: 20071120
  Transmission Date: 20080405
  Serious: Yes (Hospitalization, Other)
  Sender: FDA-Public Use
  Company Number: GB-ABBOTT-07P-167-0420306-00

PATIENT
  Sex: Female

DRUGS (14)
  1. KLARICID [Suspect]
     Indication: LOWER RESPIRATORY TRACT INFECTION
     Route: 048
     Dates: start: 20071008, end: 20071009
  2. EPILIM [Interacting]
     Indication: EPILEPSY
  3. VALPROATE SODIUM [Concomitant]
     Indication: DRUG USE FOR UNKNOWN INDICATION
     Route: 048
  4. LAMOTRIGINE [Concomitant]
     Indication: DRUG USE FOR UNKNOWN INDICATION
     Route: 048
  5. ESOMEPRAZOLE MAGNESIUM [Concomitant]
     Indication: DRUG USE FOR UNKNOWN INDICATION
     Route: 048
  6. DIAZEPAM [Concomitant]
     Indication: DRUG USE FOR UNKNOWN INDICATION
     Route: 048
  7. SOLPADOL EFFERVESCENT 30/500 [Concomitant]
     Indication: ANALGESIA
  8. VALSARTAN [Concomitant]
     Indication: BLOOD PRESSURE
  9. LEVOTHYROXINE SODIUM [Concomitant]
     Indication: THYROID DISORDER
  10. ATORVASTAIN [Concomitant]
     Indication: BLOOD CHOLESTEROL
  11. DIGOXIN [Concomitant]
     Indication: INSOMNIA
  12. ILLEGABLE [Concomitant]
     Indication: INSOMNIA
  13. TEMAZEPAM [Concomitant]
     Indication: DRUG USE FOR UNKNOWN INDICATION
  14. BISOPROLOL FUMARATE [Concomitant]
     Indication: DRUG USE FOR UNKNOWN INDICATION
     Dosage: 1-2 UNITS

REACTIONS (4)
  - CONVULSION [None]
  - DRUG INTERACTION [None]
  - GRAND MAL CONVULSION [None]
  - TREMOR [None]
